FAERS Safety Report 11080166 (Version 2)
Quarter: 2015Q2

REPORT INFORMATION
  Report Type: Report from Study
  Country: US (occurrence: US)
  Receive Date: 20150430
  Receipt Date: 20150601
  Transmission Date: 20150821
  Serious: Yes (Death, Hospitalization)
  Sender: FDA-Public Use
  Company Number: US-ACTELION-A-US2015-114978

PATIENT
  Age: 86 Year
  Sex: Female

DRUGS (2)
  1. TRACLEER [Suspect]
     Active Substance: BOSENTAN\BOSENTAN MONOHYDRATE
     Indication: PULMONARY ARTERIAL HYPERTENSION
     Dosage: UNK
     Route: 048
     Dates: start: 20130110, end: 20150505
  2. TREPROSTINIL [Concomitant]
     Active Substance: TREPROSTINIL
     Dosage: 2 MG, TID
     Route: 048

REACTIONS (5)
  - Bronchitis [Not Recovered/Not Resolved]
  - Aspiration [Not Recovered/Not Resolved]
  - Dyspnoea [Not Recovered/Not Resolved]
  - Diarrhoea [Not Recovered/Not Resolved]
  - Disease progression [Fatal]

NARRATIVE: CASE EVENT DATE: 20150316
